FAERS Safety Report 21191583 (Version 1)
Quarter: 2022Q3

REPORT INFORMATION
  Report Type: Spontaneous
  Country: US (occurrence: None)
  Receive Date: 20220809
  Receipt Date: 20220809
  Transmission Date: 20221027
  Serious: No
  Sender: FDA-Public Use
  Company Number: None

PATIENT
  Age: 74 Year
  Sex: Female

DRUGS (1)
  1. EVEROLIMUS [Suspect]
     Active Substance: EVEROLIMUS
     Indication: Breast cancer female
     Dosage: FREQUENCY : DAILY;?
     Route: 048
     Dates: start: 202203, end: 20220730

REACTIONS (6)
  - Stomatitis [None]
  - Swelling face [None]
  - Facial pain [None]
  - Hypophagia [None]
  - Weight decreased [None]
  - Therapy interrupted [None]

NARRATIVE: CASE EVENT DATE: 20220415
